FAERS Safety Report 15304266 (Version 1)
Quarter: 2018Q3

REPORT INFORMATION
  Report Type: Spontaneous
  Country: US (occurrence: US)
  Receive Date: 20180809
  Receipt Date: 20180809
  Transmission Date: 20181010
  Serious: No
  Sender: FDA-Public Use
  Company Number: None

PATIENT
  Age: 61 Year
  Sex: Female
  Weight: 74.84 kg

DRUGS (1)
  1. VALSARTAN 320MG TABLETS [Suspect]
     Active Substance: VALSARTAN
     Indication: BLOOD PRESSURE MANAGEMENT
     Dosage: 1 PILL DAIL MOUTHY ORAL
     Route: 048
     Dates: start: 201803, end: 20180713

REACTIONS (9)
  - Headache [None]
  - Pain [None]
  - Gastrointestinal disorder [None]
  - Diarrhoea [None]
  - Product impurity [None]
  - Respiratory disorder [None]
  - Product use issue [None]
  - Insomnia [None]
  - Fatigue [None]

NARRATIVE: CASE EVENT DATE: 20180713
